FAERS Safety Report 6434920-3 (Version None)
Quarter: 2009Q4

REPORT INFORMATION
  Report Type: 
  Country: None (occurrence: None)
  Receive Date: 20091109
  Receipt Date: 20091109
  Transmission Date: 20100525
  Serious: Yes (Hospitalization)
  Sender: FDA-Public Use
  Company Number: None

PATIENT
  Sex: Female
  Weight: 77.1115 kg

DRUGS (1)
  1. RISPERIDONE [Suspect]
     Indication: AFFECTIVE DISORDER
     Dosage: .5 MG BEFORE BEDTIME PO
     Route: 048
     Dates: start: 20091104, end: 20091105

REACTIONS (10)
  - BODY TEMPERATURE FLUCTUATION [None]
  - DYSPHAGIA [None]
  - DYSPNOEA [None]
  - HEADACHE [None]
  - HYPERACUSIS [None]
  - HYPOAESTHESIA [None]
  - MUSCLE TWITCHING [None]
  - PARAESTHESIA [None]
  - PHOTOPHOBIA [None]
  - TEMPERATURE INTOLERANCE [None]
